FAERS Safety Report 4302040-X (Version None)
Quarter: 2004Q1

REPORT INFORMATION
  Report Type: 
  Country: None (occurrence: None)
  Receive Date: 20040223
  Receipt Date: 20040130
  Transmission Date: 20041129
  Serious: Yes (Life-Threatening, Hospitalization)
  Sender: FDA-Public Use
  Company Number: FR-ROCHE-357653

PATIENT
  Age: 45 Year
  Sex: Male
  Weight: 70 kg

DRUGS (6)
  1. RIVOTRIL [Suspect]
     Indication: BONE PAIN
     Route: 048
     Dates: start: 20031231
  2. RIVOTRIL [Suspect]
     Route: 048
  3. ZALDIAR [Interacting]
     Indication: BONE PAIN
     Route: 048
     Dates: start: 20031229
  4. AOTAL [Concomitant]
     Route: 048
  5. MOBIC [Concomitant]
     Route: 048
     Dates: start: 20031229, end: 20031231
  6. ALCOHOL [Concomitant]
     Dosage: DOSE PROVIDED AS ^TWO GLASSES^

REACTIONS (4)
  - COMA [None]
  - DRUG INTERACTION [None]
  - OVERDOSE [None]
  - RESPIRATORY DISTRESS [None]
